FAERS Safety Report 7668614-3 (Version None)
Quarter: 2011Q3

REPORT INFORMATION
  Report Type: 
  Country: None (occurrence: None)
  Receive Date: 20110808
  Receipt Date: 20110808
  Transmission Date: 20111222
  Serious: Yes (Other)
  Sender: FDA-Public Use
  Company Number: None

PATIENT
  Age: 65 Year
  Sex: Female
  Weight: 90.718 kg

DRUGS (2)
  1. ZOLPIDEM TARTRATE [Suspect]
  2. LORAZEPAM [Concomitant]

REACTIONS (8)
  - DRUG DISPENSING ERROR [None]
  - DRUG ADMINISTERED AT INAPPROPRIATE SITE [None]
  - NAUSEA [None]
  - MEMORY IMPAIRMENT [None]
  - BLOOD PRESSURE DECREASED [None]
  - DIZZINESS [None]
  - WRONG DRUG ADMINISTERED [None]
  - MEDICATION ERROR [None]
